FAERS Safety Report 10158950 (Version 1)
Quarter: 2014Q2

REPORT INFORMATION
  Report Type: Spontaneous
  Country: US (occurrence: US)
  Receive Date: 20140508
  Receipt Date: 20140508
  Transmission Date: 20141212
  Serious: No
  Sender: FDA-Public Use
  Company Number: US-BIOGENIDEC-2014BI039821

PATIENT
  Age: 58 Year
  Sex: Female

DRUGS (16)
  1. TRILIPIX [Concomitant]
  2. VITAMIN C [Concomitant]
  3. VITAMIN D [Concomitant]
  4. TECFIDERA [Suspect]
     Indication: MULTIPLE SCLEROSIS
     Route: 048
     Dates: start: 201401
  5. ACETYL L-CARNITINE [Concomitant]
  6. ADVIL [Concomitant]
  7. AMPYRA [Concomitant]
  8. BACLOFEN [Concomitant]
  9. DEPAKOTE [Concomitant]
  10. ECOTRIN [Concomitant]
  11. LUTEIN [Concomitant]
  12. MYRBETRIQ [Concomitant]
  13. PEXEVA [Concomitant]
  14. PRILOSEC [Concomitant]
  15. SIMVASTATIN [Concomitant]
  16. SLO-NIACIN [Concomitant]

REACTIONS (1)
  - Fatigue [Unknown]
